FAERS Safety Report 5588792-X (Version None)
Quarter: 2008Q1

REPORT INFORMATION
  Report Type: 
  Country: None (occurrence: None)
  Receive Date: 20080111
  Receipt Date: 20080111
  Transmission Date: 20080703
  Serious: Yes (Life-Threatening, Hospitalization)
  Sender: FDA-Public Use
  Company Number: B0502379A

PATIENT
  Age: 68 Year
  Sex: Male
  Weight: 90 kg

DRUGS (8)
  1. ROSIGLITAZONE [Suspect]
     Route: 048
     Dates: start: 20010101
  2. ROSIGLITAZONE [Suspect]
     Route: 048
     Dates: start: 20040805, end: 20070119
  3. SIMVASTATIN [Concomitant]
     Route: 048
  4. TELMISARTAN [Concomitant]
     Route: 048
  5. GLICLAZIDE [Concomitant]
     Route: 048
  6. METFORMIN HCL [Concomitant]
     Route: 048
  7. VERAPAMIL [Concomitant]
     Route: 048
     Dates: start: 20060904
  8. FUROSEMIDE [Concomitant]
     Route: 048
     Dates: start: 20061201

REACTIONS (5)
  - FLUID RETENTION [None]
  - OEDEMA PERIPHERAL [None]
  - PULMONARY HYPERTENSION [None]
  - PULMONARY OEDEMA [None]
  - RENAL FAILURE [None]
